FAERS Safety Report 5298835-9 (Version None)
Quarter: 2007Q2

REPORT INFORMATION
  Report Type: 
  Country: None (occurrence: None)
  Receive Date: 20070417
  Receipt Date: 20040915
  Transmission Date: 20071010
  Serious: No
  Sender: FDA-Public Use
  Company Number: US-AMGEN-US086912

PATIENT
  Age: 58 Year
  Sex: Male

DRUGS (16)
  1. SENSIPAR [Suspect]
     Indication: HYPERPARATHYROIDISM SECONDARY
     Route: 048
     Dates: start: 20040701, end: 20040809
  2. HECTORAL [Concomitant]
  3. RENAGEL [Concomitant]
  4. VENOFER [Concomitant]
  5. EPOGEN [Concomitant]
     Indication: DIALYSIS
  6. NEXIUM [Concomitant]
  7. ASPIRIN [Concomitant]
  8. LIPITOR [Concomitant]
  9. CLONAZEPAM [Concomitant]
  10. TOPROL-XL [Concomitant]
  11. ALLOPURINOL [Concomitant]
  12. LASIX [Concomitant]
  13. FLOMAX [Concomitant]
  14. NEPHRO-VITE [Concomitant]
  15. ALLEGRA [Concomitant]
  16. DOCUSATE [Concomitant]

REACTIONS (2)
  - BLOOD PARATHYROID HORMONE INCREASED [None]
  - RASH ERYTHEMATOUS [None]
